FAERS Safety Report 25264630 (Version 1)
Quarter: 2025Q2

REPORT INFORMATION
  Report Type: Spontaneous
  Country: US (occurrence: US)
  Receive Date: 20250502
  Receipt Date: 20250502
  Transmission Date: 20250716
  Serious: Yes (Other)
  Sender: BLUEPRINT MEDICINES CORPORATION
  Company Number: US-Blueprint Medicines Corporation-2025-AER-00886

PATIENT
  Age: 43 Year
  Sex: Female

DRUGS (1)
  1. AYVAKIT [Suspect]
     Active Substance: AVAPRITINIB
     Indication: Malignant mast cell neoplasm
     Route: 065
     Dates: start: 20230719

REACTIONS (12)
  - Malignant mast cell neoplasm [Unknown]
  - Condition aggravated [Unknown]
  - Food allergy [Unknown]
  - Abdominal pain [Unknown]
  - Diarrhoea [Unknown]
  - Brain fog [Unknown]
  - Memory impairment [Unknown]
  - Nervous system disorder [Unknown]
  - Dizziness [Unknown]
  - Pruritus [Unknown]
  - Dry skin [Unknown]
  - Nausea [Unknown]
